FAERS Safety Report 20788027 (Version 1)
Quarter: 2022Q2

REPORT INFORMATION
  Report Type: Spontaneous
  Country: US (occurrence: US)
  Receive Date: 20220505
  Receipt Date: 20220505
  Transmission Date: 20220721
  Serious: Yes (Hospitalization, Other)
  Sender: FDA-Public Use
  Company Number: US-ORG100016242-2022000753

PATIENT

DRUGS (1)
  1. EXPAREL [Suspect]
     Active Substance: BUPIVACAINE
     Indication: Postoperative analgesia
     Dosage: DOSING REGIMEN NOT PROVIDED, SINGLE DOSE
     Route: 050

REACTIONS (2)
  - Hospitalisation [Unknown]
  - Emergency care [Unknown]
